FAERS Safety Report 5305417-9 (Version None)
Quarter: 2007Q2

REPORT INFORMATION
  Report Type: 
  Country: None (occurrence: None)
  Receive Date: 20070424
  Receipt Date: 20070413
  Transmission Date: 20071010
  Serious: Yes (Other)
  Sender: FDA-Public Use
  Company Number: GB-NOVOPROD-262727

PATIENT
  Age: 87 Year
  Sex: Female

DRUGS (2)
  1. NOVOMIX 30 [Suspect]
     Indication: DIABETES MELLITUS
     Dosage: 40 IU, QD
  2. NOVOMIX 30 [Suspect]
     Dosage: 56 IU, QD
     Dates: start: 20070412

REACTIONS (3)
  - BLOOD GLUCOSE INCREASED [None]
  - URINARY TRACT INFECTION [None]
  - URINE KETONE BODY PRESENT [None]
